FAERS Safety Report 4886463-6 (Version None)
Quarter: 2006Q1

REPORT INFORMATION
  Report Type: 
  Country: None (occurrence: None)
  Receive Date: 20060118
  Receipt Date: 20060104
  Transmission Date: 20060701
  Serious: Yes (Hospitalization)
  Sender: FDA-Public Use
  Company Number: US_0505117905

PATIENT
  Age: 47 Year
  Sex: Male
  Weight: 113.6 kg

DRUGS (1)
  1. ZYPREXA [Suspect]
     Indication: ANXIETY
     Dosage: 5 MG, EACH EVENING, ORAL
     Route: 048
     Dates: start: 20020628

REACTIONS (6)
  - BLOOD GLUCOSE INCREASED [None]
  - DIABETES MELLITUS INADEQUATE CONTROL [None]
  - ESSENTIAL HYPERTENSION [None]
  - METABOLIC DISORDER [None]
  - TREATMENT NONCOMPLIANCE [None]
  - VISION BLURRED [None]
